FAERS Safety Report 17480508 (Version 1)
Quarter: 2020Q1

REPORT INFORMATION
  Report Type: Spontaneous
  Country: US (occurrence: US)
  Receive Date: 20200301
  Receipt Date: 20200301
  Transmission Date: 20200409
  Serious: No
  Sender: FDA-Public Use
  Company Number: US-GALDERMA-US19054614

PATIENT
  Age: 19 Year
  Sex: Female

DRUGS (4)
  1. NEUTROGENA HYDROBOOST MOISTURIZER [Concomitant]
     Indication: PRODUCT USED FOR UNKNOWN INDICATION
     Route: 065
     Dates: start: 201905
  2. DIFFERIN GEL [Suspect]
     Active Substance: ADAPALENE
     Indication: ACNE
     Dosage: 0.1%
     Route: 061
     Dates: start: 201907
  3. DIFFERIN GEL [Suspect]
     Active Substance: ADAPALENE
     Dosage: 0.1%
     Route: 061
     Dates: start: 2019
  4. CETAPHIL (AVOBENZONE\OCTOCRYLENE) [Suspect]
     Active Substance: AVOBENZONE\OCTOCRYLENE
     Indication: DRY SKIN PROPHYLAXIS
     Route: 061
     Dates: start: 201907

REACTIONS (6)
  - Pruritus [Recovered/Resolved]
  - Inappropriate schedule of product administration [Recovered/Resolved]
  - Swelling of eyelid [Recovered/Resolved]
  - Eyelids pruritus [Recovered/Resolved]
  - Skin burning sensation [Not Recovered/Not Resolved]
  - Underdose [Recovered/Resolved]

NARRATIVE: CASE EVENT DATE: 201907
